FAERS Safety Report 21527653 (Version 1)
Quarter: 2022Q4

REPORT INFORMATION
  Report Type: Report from Study
  Country: US (occurrence: US)
  Receive Date: 20221031
  Receipt Date: 20221031
  Transmission Date: 20230113
  Serious: No
  Sender: FDA-Public Use
  Company Number: US-ABBVIE-4159924

PATIENT
  Sex: Male

DRUGS (15)
  1. VENCLEXTA [Suspect]
     Active Substance: VENETOCLAX
     Indication: Acute myeloid leukaemia
     Route: 048
     Dates: start: 20220302
  2. 400 mg Magnesium oxide [Concomitant]
     Indication: Product used for unknown indication
  3. 4 mg Dexamethasone [Concomitant]
     Indication: Product used for unknown indication
     Route: 065
  4. 20 mg Lisinopril [Concomitant]
     Indication: Product used for unknown indication
  5. SINGULAIR [Concomitant]
     Active Substance: MONTELUKAST SODIUM
     Indication: Product used for unknown indication
  6. POTASSIUM CHLORIDE [Concomitant]
     Active Substance: POTASSIUM CHLORIDE
     Indication: Product used for unknown indication
  7. 50 mg Tramadol HCL [Concomitant]
     Indication: Product used for unknown indication
  8. 25 mg Jardiance [Concomitant]
     Indication: Product used for unknown indication
  9. Dialyvite vitamin d3 max [Concomitant]
     Indication: Product used for unknown indication
  10. 20 mg Lipitor [Concomitant]
     Indication: Product used for unknown indication
  11. 100 mg Metoprolol succinate [Concomitant]
     Indication: Product used for unknown indication
  12. 100 mg Allopurinol [Concomitant]
     Indication: Product used for unknown indication
  13. 0.4 mg Flomax [Concomitant]
     Indication: Product used for unknown indication
  14. 250 mg Ciprofloxacin, Tablets [Concomitant]
     Indication: Product used for unknown indication
  15. 5 mg Eliquis [Concomitant]
     Indication: Product used for unknown indication

REACTIONS (1)
  - Muscular weakness [Unknown]
